FAERS Safety Report 14013716 (Version 15)
Quarter: 2018Q4

REPORT INFORMATION
  Report Type: Report from Study
  Country: US (occurrence: US)
  Receive Date: 20170926
  Receipt Date: 20181205
  Transmission Date: 20190204
  Serious: Yes (Death, Hospitalization, Other)
  Sender: FDA-Public Use
  Company Number: US-ACTELION-A-NJ2017-147963

PATIENT
  Age: 68 Year
  Sex: Female
  Weight: 59.86 kg

DRUGS (8)
  1. NIFEDIPINE. [Concomitant]
     Active Substance: NIFEDIPINE
  2. DILTIAZEM. [Concomitant]
     Active Substance: DILTIAZEM
  3. REMODULIN [Concomitant]
     Active Substance: TREPROSTINIL
  4. TRACLEER [Suspect]
     Active Substance: BOSENTAN
     Dosage: 125 MG, BID
     Route: 048
  5. WARFARIN [Concomitant]
     Active Substance: WARFARIN
  6. OXYGEN. [Concomitant]
     Active Substance: OXYGEN
  7. TRACLEER [Suspect]
     Active Substance: BOSENTAN
     Indication: PULMONARY ARTERIAL HYPERTENSION
     Dosage: 125 MG, BID
     Route: 048
     Dates: start: 20070307
  8. ADCIRCA [Concomitant]
     Active Substance: TADALAFIL

REACTIONS (27)
  - Respiratory disorder [Unknown]
  - Cystitis [Unknown]
  - Dyspnoea [Unknown]
  - Atrial fibrillation [Unknown]
  - Pulmonary mass [Unknown]
  - Platelet transfusion [Unknown]
  - Respiratory distress [Unknown]
  - Pruritus [Unknown]
  - Hospitalisation [Unknown]
  - Hypoxia [Unknown]
  - Sepsis [Unknown]
  - Fungaemia [Unknown]
  - Malaise [Unknown]
  - Bacterial infection [Unknown]
  - Condition aggravated [Unknown]
  - Platelet count decreased [Unknown]
  - Oxygen saturation decreased [Unknown]
  - Vascular occlusion [Unknown]
  - Catheter site rash [Unknown]
  - Death [Fatal]
  - Respiratory failure [Unknown]
  - Catheter site erosion [Unknown]
  - Sinusitis [Unknown]
  - Decreased appetite [Unknown]
  - Asthenia [Unknown]
  - Chronic obstructive pulmonary disease [Unknown]
  - Bilevel positive airway pressure [Unknown]

NARRATIVE: CASE EVENT DATE: 20161216
